FAERS Safety Report 6071258-0 (Version None)
Quarter: 2009Q1

REPORT INFORMATION
  Report Type: 
  Country: None (occurrence: None)
  Receive Date: 20090209
  Receipt Date: 20090129
  Transmission Date: 20090719
  Serious: Yes (Hospitalization)
  Sender: FDA-Public Use
  Company Number: CA-PFIZER INC-2009163219

PATIENT

DRUGS (4)
  1. CHAMPIX [Suspect]
     Dosage: UNK
  2. CRESTOR [Concomitant]
     Dosage: UNK
  3. COVERSYL [Concomitant]
     Dosage: UNK
  4. DRUG, UNSPECIFIED [Concomitant]
     Dosage: UNK

REACTIONS (1)
  - DYSKINESIA [None]
